FAERS Safety Report 8789531 (Version 1)
Quarter: 2012Q4

REPORT INFORMATION
  Report Type: Spontaneous
  Country: US (occurrence: None)
  Receive Date: 20120910
  Receipt Date: 20120910
  Transmission Date: 20130627
  Serious: Yes (Other)
  Sender: FDA-Public Use
  Company Number: None

PATIENT
  Age: 5 Year
  Sex: Female

DRUGS (1)
  1. NAGLAZYME [Suspect]
     Route: 042
     Dates: start: 20110107

REACTIONS (4)
  - Chills [None]
  - Tremor [None]
  - Body temperature increased [None]
  - Infusion related reaction [None]
